FAERS Safety Report 7333084-1 (Version None)
Quarter: 2011Q1

REPORT INFORMATION
  Report Type: 
  Country: None (occurrence: None)
  Receive Date: 20110304
  Receipt Date: 20110221
  Transmission Date: 20110831
  Serious: Yes (Other)
  Sender: FDA-Public Use
  Company Number: PHHY2011JP10997

PATIENT
  Age: 37 Year
  Sex: Male

DRUGS (9)
  1. SIMULECT [Suspect]
     Indication: RENAL TRANSPLANT
     Dosage: 20 MG
  2. PREDNISOLONE [Concomitant]
     Indication: RENAL TRANSPLANT
  3. PLASMA [Concomitant]
  4. GANCICLOVIR [Concomitant]
  5. STEROIDS NOS [Concomitant]
  6. IMMUNOGLOBULIN ANTI-HUMAN-LYMPHOCYTIC [Concomitant]
  7. CICLOSPORIN [Suspect]
     Indication: RENAL TRANSPLANT
     Dosage: UNK
  8. MYCOPHENOLATE MOFETIL [Concomitant]
     Indication: RENAL TRANSPLANT
  9. RITUXIMAB [Concomitant]

REACTIONS (7)
  - PYELOCALIECTASIS [None]
  - CYTOMEGALOVIRUS TEST POSITIVE [None]
  - CYTOMEGALOVIRUS INFECTION [None]
  - URINE OUTPUT INCREASED [None]
  - HAEMATURIA [None]
  - RENAL HAEMORRHAGE [None]
  - OLIGURIA [None]
